FAERS Safety Report 17254045 (Version 1)
Quarter: 2020Q1

REPORT INFORMATION
  Report Type: Report from Study
  Country: US (occurrence: US)
  Receive Date: 20200109
  Receipt Date: 20200109
  Transmission Date: 20200409
  Serious: Yes (Hospitalization)
  Sender: FDA-Public Use
  Company Number: US-EISAI MEDICAL RESEARCH-EC-2019-056200

PATIENT
  Age: 68 Year
  Sex: Male

DRUGS (4)
  1. LENVIMA [Suspect]
     Active Substance: LENVATINIB
     Indication: HEPATOCELLULAR CARCINOMA
     Route: 048
     Dates: start: 20190503, end: 20190520
  2. LENVIMA [Suspect]
     Active Substance: LENVATINIB
     Route: 048
     Dates: start: 2019
  3. LENVIMA [Suspect]
     Active Substance: LENVATINIB
     Route: 048
     Dates: start: 20190521, end: 2019
  4. LENVIMA [Suspect]
     Active Substance: LENVATINIB
     Route: 048
     Dates: start: 2019, end: 2019

REACTIONS (20)
  - Decreased appetite [Not Recovered/Not Resolved]
  - Taste disorder [Not Recovered/Not Resolved]
  - Early satiety [Not Recovered/Not Resolved]
  - Balance disorder [Recovered/Resolved]
  - Confusional state [Not Recovered/Not Resolved]
  - Cough [Not Recovered/Not Resolved]
  - Hepatic pain [Recovered/Resolved]
  - Anal incontinence [Not Recovered/Not Resolved]
  - Dehydration [Not Recovered/Not Resolved]
  - Asthenia [Not Recovered/Not Resolved]
  - Hypotension [Not Recovered/Not Resolved]
  - Fall [Recovered/Resolved]
  - Pulmonary oedema [Not Recovered/Not Resolved]
  - Dysphonia [Recovered/Resolved]
  - Pruritus [Recovered/Resolved]
  - Nausea [Not Recovered/Not Resolved]
  - Weight decreased [Not Recovered/Not Resolved]
  - Infection [Recovered/Resolved]
  - Urinary incontinence [Not Recovered/Not Resolved]
  - Fatigue [Not Recovered/Not Resolved]

NARRATIVE: CASE EVENT DATE: 201905
